FAERS Safety Report 6315042-9 (Version None)
Quarter: 2009Q3

REPORT INFORMATION
  Report Type: 
  Country: None (occurrence: None)
  Receive Date: 20090819
  Receipt Date: 20090806
  Transmission Date: 20100115
  Serious: Yes (Other)
  Sender: FDA-Public Use
  Company Number: RO-ROCHE-649007

PATIENT
  Sex: Female
  Weight: 65 kg

DRUGS (4)
  1. COPEGUS [Suspect]
     Route: 048
     Dates: start: 20090525, end: 20090804
  2. NEORECORMON [Suspect]
     Dosage: DOSE : 40000 U
     Route: 058
     Dates: start: 20090706, end: 20090731
  3. PEGASYS [Suspect]
     Route: 058
     Dates: start: 20090525, end: 20090804
  4. PRESTARIUM [Concomitant]
     Indication: ESSENTIAL HYPERTENSION
     Route: 048
     Dates: start: 20060101

REACTIONS (2)
  - ANAEMIA [None]
  - THROMBOPHLEBITIS [None]
